FAERS Safety Report 13779728 (Version 2)
Quarter: 2017Q4

REPORT INFORMATION
  Report Type: Spontaneous
  Country: US (occurrence: US)
  Receive Date: 20170722
  Receipt Date: 20171016
  Transmission Date: 20180320
  Serious: Yes (Other)
  Sender: FDA-Public Use
  Company Number: US-009507513-1707USA002435

PATIENT
  Age: 26 Year
  Sex: Female
  Weight: 134.69 kg

DRUGS (2)
  1. NEXPLANON [Suspect]
     Active Substance: ETONOGESTREL
     Dosage: 1 ROD EVERY 3 YEARS
     Route: 059
     Dates: start: 20170706
  2. NEXPLANON [Suspect]
     Active Substance: ETONOGESTREL
     Indication: CONTRACEPTION
     Dosage: 1 DF, ONCE
     Route: 059
     Dates: start: 20170706, end: 20170706

REACTIONS (5)
  - Device deployment issue [Recovered/Resolved]
  - Pregnancy with implant contraceptive [Unknown]
  - Device expulsion [Recovered/Resolved]
  - No adverse event [Unknown]
  - Unintended pregnancy [Unknown]

NARRATIVE: CASE EVENT DATE: 20170706
